FAERS Safety Report 24399621 (Version 4)
Quarter: 2025Q3

REPORT INFORMATION
  Report Type: Report from Study
  Country: KR (occurrence: KR)
  Receive Date: 20241005
  Receipt Date: 20250904
  Transmission Date: 20251021
  Serious: Yes (Hospitalization, Other)
  Sender: ABBVIE
  Company Number: KR-ABBVIE-5945103

PATIENT
  Age: 62 Year
  Sex: Female
  Weight: 59 kg

DRUGS (18)
  1. RINVOQ [Suspect]
     Active Substance: UPADACITINIB
     Indication: Colitis ulcerative
     Route: 048
     Dates: start: 20240902, end: 20241027
  2. RINVOQ [Suspect]
     Active Substance: UPADACITINIB
     Indication: Colitis ulcerative
     Route: 048
     Dates: start: 20241028, end: 20250119
  3. RINVOQ [Suspect]
     Active Substance: UPADACITINIB
     Indication: Colitis ulcerative
     Route: 048
     Dates: start: 20250120
  4. Leclean [Concomitant]
     Indication: Premedication
     Route: 054
     Dates: start: 20241021, end: 20241021
  5. METHYLPREDNISOLONE [Concomitant]
     Active Substance: METHYLPREDNISOLONE
     Indication: Colitis ulcerative
     Dosage: FORM STRENGTH: 125 MILLIGRAM
     Route: 042
     Dates: start: 20240906, end: 20240908
  6. METHYLPREDNISOLONE [Concomitant]
     Active Substance: METHYLPREDNISOLONE
     Indication: Colitis ulcerative
     Dosage: FORM STRENGTH: 125 MILLIGRAM
     Route: 042
     Dates: start: 20240909, end: 20240909
  7. METHYLPREDNISOLONE [Concomitant]
     Active Substance: METHYLPREDNISOLONE
     Indication: Colitis ulcerative
     Dosage: FORM STRENGTH: 125 MILLIGRAM
     Route: 042
     Dates: start: 20240902, end: 20240904
  8. METHYLPREDNISOLONE [Concomitant]
     Active Substance: METHYLPREDNISOLONE
     Indication: Colitis ulcerative
     Dosage: FORM STRENGTH: 125 MILLIGRAM
     Route: 042
     Dates: start: 20240905, end: 20240905
  9. Alpit [Concomitant]
     Indication: Sigmoidoscopy
     Route: 030
     Dates: start: 20241021, end: 20241021
  10. Alpit [Concomitant]
     Indication: Sigmoidoscopy
     Route: 030
     Dates: start: 20250206, end: 20250206
  11. LIPITOR [Concomitant]
     Active Substance: ATORVASTATIN CALCIUM
     Indication: Hyperlipidaemia
     Route: 048
     Dates: start: 20250120
  12. SHINGRIX [Concomitant]
     Active Substance: RECOMBINANT VARICELLA ZOSTER VIRUS (VZV) GLYCOPROTEIN E
     Indication: Prophylaxis
     Route: 030
     Dates: start: 20241028, end: 20241028
  13. Hana pethidine hcl [Concomitant]
     Indication: Sigmoidoscopy
     Route: 030
     Dates: start: 20241021, end: 20241021
  14. Hana pethidine hcl [Concomitant]
     Indication: Sigmoidoscopy
     Route: 030
     Dates: start: 20250206, end: 20250206
  15. FERINJECT [Concomitant]
     Active Substance: FERRIC CARBOXYMALTOSE
     Indication: Prophylaxis
     Dosage: UNIT DOSE:1 VIAL
     Route: 042
     Dates: start: 20250721, end: 20250721
  16. Solondo [Concomitant]
     Indication: Colitis ulcerative
     Route: 048
     Dates: start: 20240913, end: 20240929
  17. Solondo [Concomitant]
     Indication: Colitis ulcerative
     Route: 048
     Dates: start: 20240910, end: 20240911
  18. Solondo [Concomitant]
     Indication: Colitis ulcerative
     Route: 048
     Dates: start: 20240912, end: 20240912

REACTIONS (4)
  - Acute haemorrhagic ulcerative colitis [Recovered/Resolved]
  - Herpes zoster [Recovered/Resolved]
  - Alopecia [Recovered/Resolved]
  - Influenza [Recovered/Resolved]

NARRATIVE: CASE EVENT DATE: 20240901
